FAERS Safety Report 10086416 (Version 1)
Quarter: 2014Q2

REPORT INFORMATION
  Report Type: Spontaneous
  Country: US (occurrence: None)
  Receive Date: 20140417
  Receipt Date: 20140417
  Transmission Date: 20141212
  Serious: No
  Sender: FDA-Public Use
  Company Number: None

PATIENT
  Age: 67 Year
  Sex: Male

DRUGS (1)
  1. FORTEO [Suspect]
     Route: 058
     Dates: start: 20130308

REACTIONS (3)
  - Nephrolithiasis [None]
  - Neuropathy peripheral [None]
  - Pain in jaw [None]
